FAERS Safety Report 10022280 (Version 2)
Quarter: 2014Q1

REPORT INFORMATION
  Report Type: Report from Study
  Country: US (occurrence: None)
  Receive Date: 20131217
  Receipt Date: 20140108
  Transmission Date: 20141002
  Serious: Yes (Hospitalization, Other)
  Sender: FDA-Public Use
  Company Number: 2013SA115231

PATIENT
  Age: 50 Year
  Sex: 0

DRUGS (12)
  1. AFLIBERCEPT [Suspect]
     Indication: NEOPLASM MALIGNANT
     Route: 042
     Dates: start: 20131010, end: 20131010
  2. SAR307746 [Suspect]
     Route: 042
     Dates: start: 20131010, end: 20131010
  3. BACLOFEN [Concomitant]
  4. GENERAL NUTRIENTS [Concomitant]
  5. MULTIVITAMINS [Concomitant]
  6. MULTIVITAMINS [Concomitant]
  7. DUCOLAX [Concomitant]
  8. IBUPROFEN [Concomitant]
  9. LEVAQUIN [Concomitant]
  10. NEURONTIN [Concomitant]
  11. POLETHYLENE GLYCOL [Concomitant]
  12. TIZANIDINE [Concomitant]

REACTIONS (2)
  - Nuclear magnetic resonance imaging brain abnormal [None]
  - Intestinal obstruction [None]
